FAERS Safety Report 24627629 (Version 1)
Quarter: 2024Q4

REPORT INFORMATION
  Report Type: Spontaneous
  Country: DE (occurrence: DE)
  Receive Date: 20241116
  Receipt Date: 20241116
  Transmission Date: 20250114
  Serious: Yes (Death, Other)
  Sender: AUROBINDO
  Company Number: DE-CHEPLA-2024013906

PATIENT
  Age: 24 Year

DRUGS (13)
  1. VALGANCICLOVIR [Suspect]
     Active Substance: VALGANCICLOVIR
     Indication: Cytomegalovirus viraemia
     Dosage: UNK
     Route: 065
  2. VALGANCICLOVIR [Suspect]
     Active Substance: VALGANCICLOVIR
     Indication: Adenovirus infection
  3. CIDOFOVIR [Suspect]
     Active Substance: CIDOFOVIR
     Indication: Cytomegalovirus viraemia
     Dosage: UNK
     Route: 065
  4. CIDOFOVIR [Suspect]
     Active Substance: CIDOFOVIR
     Indication: Adenovirus infection
  5. ETOPOSIDE [Suspect]
     Active Substance: ETOPOSIDE
     Indication: Acute lymphocytic leukaemia
     Dosage: UNK
     Route: 065
  6. FOSCARNET [Suspect]
     Active Substance: FOSCARNET
     Indication: Cytomegalovirus viraemia
     Dosage: UNK
     Route: 065
  7. FOSCARNET [Suspect]
     Active Substance: FOSCARNET
     Indication: Adenovirus infection
  8. FLUDARABINE [Concomitant]
     Active Substance: FLUDARABINE PHOSPHATE
     Indication: Acute lymphocytic leukaemia
     Dosage: UNK
     Route: 065
  9. THIOTEPA [Concomitant]
     Active Substance: THIOTEPA
     Indication: Acute lymphocytic leukaemia
     Dosage: UNK
     Route: 065
  10. MELPHALAN [Concomitant]
     Active Substance: MELPHALAN
     Indication: Acute lymphocytic leukaemia
     Dosage: UNK
     Route: 065
  11. TACROLIMUS [Concomitant]
     Active Substance: TACROLIMUS
     Indication: Prophylaxis against graft versus host disease
     Dosage: UNK
     Route: 065
  12. METHOTREXATE [Concomitant]
     Active Substance: METHOTREXATE
     Indication: Prophylaxis against graft versus host disease
     Dosage: UNK
     Route: 065
  13. MYCOPHENOLATE MOFETIL [Concomitant]
     Active Substance: MYCOPHENOLATE MOFETIL
     Indication: Prophylaxis against graft versus host disease
     Dosage: UNK
     Route: 065

REACTIONS (4)
  - Transplant failure [Fatal]
  - Infection [Fatal]
  - Therapy non-responder [Unknown]
  - Off label use [Unknown]
